FAERS Safety Report 20760297 (Version 1)
Quarter: 2022Q2

REPORT INFORMATION
  Report Type: Spontaneous
  Country: US (occurrence: US)
  Receive Date: 20220428
  Receipt Date: 20220428
  Transmission Date: 20220721
  Serious: No
  Sender: FDA-Public Use
  Company Number: US-ENDO PHARMACEUTICALS INC-2022-001058

PATIENT
  Sex: Female
  Weight: 56.689 kg

DRUGS (3)
  1. QWO [Suspect]
     Active Substance: COLLAGENASE CLOSTRIDIUM HISTOLYTICUM-AAES
     Indication: Skin indentation
     Dosage: UNK, UNKNOWN (TREATMENT ONE)
     Route: 065
     Dates: start: 20210809
  2. QWO [Suspect]
     Active Substance: COLLAGENASE CLOSTRIDIUM HISTOLYTICUM-AAES
     Dosage: UNK, UNKNOWN (TREATMENT TWO)
     Route: 065
     Dates: start: 20210830
  3. QWO [Suspect]
     Active Substance: COLLAGENASE CLOSTRIDIUM HISTOLYTICUM-AAES
     Dosage: UNK, UNKNOWN (TREATMENT THREE)
     Route: 065
     Dates: start: 20211027

REACTIONS (5)
  - Ill-defined disorder [Not Recovered/Not Resolved]
  - Skin indentation [Not Recovered/Not Resolved]
  - Skin discolouration [Not Recovered/Not Resolved]
  - Contusion [Not Recovered/Not Resolved]
  - Off label use [Recovered/Resolved]

NARRATIVE: CASE EVENT DATE: 20210101
